FAERS Safety Report 7275708-3 (Version None)
Quarter: 2011Q1

REPORT INFORMATION
  Report Type: 
  Country: None (occurrence: None)
  Receive Date: 20110202
  Receipt Date: 20110202
  Transmission Date: 20110831
  Serious: Yes (Other)
  Sender: FDA-Public Use
  Company Number: None

PATIENT
  Age: 60 Year
  Sex: Female
  Weight: 68.9467 kg

DRUGS (1)
  1. LYRICA [Suspect]
     Indication: FIBROMYALGIA
     Dosage: 1 TAB BID PO
     Route: 048
     Dates: start: 20100510, end: 20100801

REACTIONS (5)
  - MALAISE [None]
  - MOVEMENT DISORDER [None]
  - HISTONE ANTIBODY POSITIVE [None]
  - ALDOLASE INCREASED [None]
  - JOINT SWELLING [None]
